FAERS Safety Report 15661494 (Version 2)
Quarter: 2018Q4

REPORT INFORMATION
  Report Type: Report from Study
  Country: EG (occurrence: EG)
  Receive Date: 20181127
  Receipt Date: 20181129
  Transmission Date: 20190205
  Serious: Yes (Death, Hospitalization, Disabling)
  Sender: FDA-Public Use
  Company Number: PHHY2018EG166336

PATIENT
  Age: 70 Year
  Sex: Female

DRUGS (4)
  1. AFINITOR [Suspect]
     Active Substance: EVEROLIMUS
     Indication: METASTASES TO LIVER
  2. AFINITOR [Suspect]
     Active Substance: EVEROLIMUS
     Indication: METASTATIC RENAL CELL CARCINOMA
     Dosage: 10 MG, QD
     Route: 048
     Dates: start: 20181015, end: 20181114
  3. AFINITOR [Suspect]
     Active Substance: EVEROLIMUS
     Indication: METASTASES TO NERVOUS SYSTEM
  4. AFINITOR [Suspect]
     Active Substance: EVEROLIMUS
     Indication: OVARIAN CANCER METASTATIC

REACTIONS (8)
  - Pharyngeal inflammation [Fatal]
  - Movement disorder [Fatal]
  - Fatigue [Fatal]
  - Vomiting [Fatal]
  - Eating disorder [Fatal]
  - Renal disorder [Fatal]
  - Dermatitis [Fatal]
  - Diarrhoea [Fatal]

NARRATIVE: CASE EVENT DATE: 201810
